FAERS Safety Report 13265499 (Version 1)
Quarter: 2017Q1

REPORT INFORMATION
  Report Type: Report from Study
  Country: BR (occurrence: BR)
  Receive Date: 20170223
  Receipt Date: 20170223
  Transmission Date: 20170428
  Serious: Yes (Other)
  Sender: FDA-Public Use
  Company Number: BR-TEVA-741633ROM

PATIENT
  Age: 76 Year
  Sex: Female

DRUGS (8)
  1. PRISTIQ EXTENDED-RELEASE [Concomitant]
     Active Substance: DESVENLAFAXINE SUCCINATE
  2. NATRILIX [Concomitant]
     Active Substance: INDAPAMIDE
  3. LYRICA [Concomitant]
     Active Substance: PREGABALIN
  4. COPAXONE [Suspect]
     Active Substance: GLATIRAMER ACETATE
     Indication: MULTIPLE SCLEROSIS
     Dosage: 20 MILLIGRAM/MILLILITERS DAILY;
     Dates: start: 20161019, end: 201611
  5. DONEPEZIL. [Concomitant]
     Active Substance: DONEPEZIL
     Dates: start: 201609
  6. PURAN [Concomitant]
     Active Substance: LEVOTHYROXINE SODIUM
     Indication: THYROID DISORDER
  7. LOSARTAN. [Concomitant]
     Active Substance: LOSARTAN
  8. TRILEPTAL [Concomitant]
     Active Substance: OXCARBAZEPINE

REACTIONS (2)
  - Increased bronchial secretion [Recovered/Resolved]
  - Pneumonia [Recovered/Resolved]

NARRATIVE: CASE EVENT DATE: 201611
